FAERS Safety Report 24610210 (Version 1)
Quarter: 2024Q4

REPORT INFORMATION
  Report Type: Spontaneous
  Country: MY (occurrence: MY)
  Receive Date: 20241112
  Receipt Date: 20241112
  Transmission Date: 20250114
  Serious: Yes (Other)
  Sender: GALDERMA
  Company Number: MY-GALDERMA-MY2024016249

PATIENT

DRUGS (4)
  1. AKLIEF [Suspect]
     Active Substance: TRIFAROTENE
     Indication: Acne
     Dosage: 1 DOSAGE FORM, ONCE DAILY IN EVENING, APPLIED ON FACE
     Route: 061
  2. AKLIEF [Suspect]
     Active Substance: TRIFAROTENE
     Dosage: 1 DOSAGE FORM, APPLIED ON FACE, TWICE
     Route: 061
  3. COSMETICS [Suspect]
     Active Substance: COSMETICS
     Indication: Therapeutic skin care topical
     Dosage: 1 DOSAGE FORM, APPLIED ON FACE
     Route: 061
  4. COSMETICS [Suspect]
     Active Substance: COSMETICS
     Indication: Therapeutic skin care topical
     Dosage: 1 DOSAGE FORM, APPLIED ON FACE
     Route: 061

REACTIONS (8)
  - Application site burn [Not Recovered/Not Resolved]
  - Scab [Unknown]
  - Application site exfoliation [Not Recovered/Not Resolved]
  - Application site fissure [Not Recovered/Not Resolved]
  - Application site erythema [Not Recovered/Not Resolved]
  - Application site pain [Not Recovered/Not Resolved]
  - Inappropriate schedule of product administration [Recovered/Resolved]
  - Accidental overdose [Recovered/Resolved]
